FAERS Safety Report 11233760 (Version 6)
Quarter: 2018Q2

REPORT INFORMATION
  Report Type: Spontaneous
  Country: CA (occurrence: CA)
  Receive Date: 20150702
  Receipt Date: 20180511
  Transmission Date: 20180711
  Serious: Yes (Other)
  Sender: FDA-Public Use
  Company Number: CA-ROCHE-1602539

PATIENT
  Age: 34 Year
  Sex: Male

DRUGS (7)
  1. SYMBICORT [Concomitant]
     Active Substance: BUDESONIDE\FORMOTEROL FUMARATE DIHYDRATE
     Route: 055
  2. XOLAIR [Suspect]
     Active Substance: OMALIZUMAB
     Route: 058
     Dates: start: 20170330
  3. XOLAIR [Suspect]
     Active Substance: OMALIZUMAB
     Route: 058
     Dates: start: 20180405
  4. XOLAIR [Suspect]
     Active Substance: OMALIZUMAB
     Indication: ASTHMA
     Route: 058
     Dates: start: 20140917
  5. XOLAIR [Suspect]
     Active Substance: OMALIZUMAB
     Route: 058
     Dates: start: 20150528
  6. XOLAIR [Suspect]
     Active Substance: OMALIZUMAB
     Route: 058
     Dates: start: 20141016
  7. BIAXIN [Concomitant]
     Active Substance: CLARITHROMYCIN
     Indication: BRONCHITIS
     Route: 065
     Dates: start: 20140922, end: 20141001

REACTIONS (11)
  - Headache [Recovering/Resolving]
  - Asthma [Unknown]
  - Sinusitis [Unknown]
  - Feeling hot [Unknown]
  - Respiratory tract infection [Unknown]
  - Fatigue [Recovering/Resolving]
  - Bronchitis [Unknown]
  - Nasopharyngitis [Unknown]
  - Pyrexia [Unknown]
  - Dyspnoea [Unknown]
  - Photopsia [Unknown]

NARRATIVE: CASE EVENT DATE: 20140917
